FAERS Safety Report 5025378-X (Version None)
Quarter: 2006Q2

REPORT INFORMATION
  Report Type: 
  Country: None (occurrence: None)
  Receive Date: 20060426
  Receipt Date: 20060111
  Transmission Date: 20061013
  Serious: Yes (Other)
  Sender: FDA-Public Use
  Company Number: 2006006368

PATIENT
  Age: 75 Year
  Sex: Female
  Weight: 61.2356 kg

DRUGS (6)
  1. LYRICA [Suspect]
     Indication: BACK DISORDER
     Dosage: 75 MG (75 MG)
     Dates: start: 20051122, end: 20051122
  2. OXYCONTIN [Concomitant]
  3. FOLIC ACID [Concomitant]
  4. VITAMINS (VITAMINS) [Concomitant]
  5. MUCINEX (GUAIFENESIN) [Concomitant]
  6. ALL OTHER THERAPEUTIC PRODUCTS (ALL OTHER THERAPEUTIC PRODUCTS) [Concomitant]

REACTIONS (4)
  - BLOOD PRESSURE INCREASED [None]
  - DIZZINESS [None]
  - HEART RATE DECREASED [None]
  - VOMITING [None]
